FAERS Safety Report 19268689 (Version 1)
Quarter: 2021Q2

REPORT INFORMATION
  Report Type: Spontaneous
  Country: US (occurrence: US)
  Receive Date: 20210518
  Receipt Date: 20210518
  Transmission Date: 20210717
  Serious: Yes (Hospitalization)
  Sender: FDA-Public Use
  Company Number: None

PATIENT
  Age: 58 Year
  Sex: Male
  Weight: 128.3 kg

DRUGS (3)
  1. DEXAMETHASONE. [Suspect]
     Active Substance: DEXAMETHASONE
     Dates: end: 20180727
  2. LENALIDOMIDE (CC?5013) [Suspect]
     Active Substance: LENALIDOMIDE
     Dates: end: 20180729
  3. VELCADE [Suspect]
     Active Substance: BORTEZOMIB
     Dates: end: 20180726

REACTIONS (3)
  - Somnolence [None]
  - Oxygen saturation decreased [None]
  - Confusional state [None]

NARRATIVE: CASE EVENT DATE: 20210427
